FAERS Safety Report 9898878 (Version 1)
Quarter: 2014Q1

REPORT INFORMATION
  Report Type: Spontaneous
  Country: BR (occurrence: BR)
  Receive Date: 20140214
  Receipt Date: 20140214
  Transmission Date: 20141002
  Serious: Yes (Death, Other)
  Sender: FDA-Public Use
  Company Number: BR-ASTRAZENECA-2014SE10128

PATIENT
  Sex: Male

DRUGS (2)
  1. BRILINTA [Suspect]
     Indication: CARDIAC DISORDER
     Dosage: EVERY 12 HOURS
     Route: 048
  2. BRILINTA [Suspect]
     Indication: CARDIAC DISORDER
     Route: 048
     Dates: start: 20121224

REACTIONS (3)
  - Malaise [Fatal]
  - Expired drug administered [Fatal]
  - Drug dispensing error [Fatal]
